FAERS Safety Report 10626802 (Version 1)
Quarter: 2014Q4

REPORT INFORMATION
  Report Type: Spontaneous
  Country: CH (occurrence: CH)
  Receive Date: 20141204
  Receipt Date: 20141204
  Transmission Date: 20150529
  Serious: Yes (Hospitalization)
  Sender: FDA-Public Use
  Company Number: CH-BAYER-2014-178817

PATIENT
  Age: 64 Year
  Sex: Male

DRUGS (3)
  1. MARCOUMAR [Interacting]
     Active Substance: PHENPROCOUMON
     Indication: THROMBOANGIITIS OBLITERANS
     Dosage: 1 DF, PRN
     Route: 048
     Dates: start: 2014
  2. ZALDIAR [Concomitant]
     Active Substance: ACETAMINOPHEN\TRAMADOL HYDROCHLORIDE
  3. ASPIRIN CARDIO [Suspect]
     Active Substance: ASPIRIN
     Indication: THROMBOANGIITIS OBLITERANS
     Dosage: 100 MG, QD
     Route: 048
     Dates: start: 2014, end: 201409

REACTIONS (3)
  - Gastrointestinal haemorrhage [Recovered/Resolved]
  - Haemorrhagic anaemia [Recovering/Resolving]
  - Acute coronary syndrome [Recovering/Resolving]

NARRATIVE: CASE EVENT DATE: 201408
